FAERS Safety Report 12230240 (Version 1)
Quarter: 2016Q1

REPORT INFORMATION
  Report Type: Spontaneous
  Country: US (occurrence: None)
  Receive Date: 20160331
  Receipt Date: 20160331
  Transmission Date: 20160526
  Serious: No
  Sender: FDA-Public Use
  Company Number: None

PATIENT
  Age: 63 Year
  Sex: Female

DRUGS (1)
  1. IBRANCE [Suspect]
     Active Substance: PALBOCICLIB
     Indication: BREAST CANCER
     Dosage: 125MG DAILY X 21 DAYS; 7 DAYS OFF BY MOUTH
     Route: 048
     Dates: start: 20160310

REACTIONS (5)
  - Pollakiuria [None]
  - Fatigue [None]
  - Diarrhoea [None]
  - Toothache [None]
  - Epistaxis [None]

NARRATIVE: CASE EVENT DATE: 20160323
